FAERS Safety Report 8304836-6 (Version None)
Quarter: 2012Q2

REPORT INFORMATION
  Report Type: 
  Country: None (occurrence: None)
  Receive Date: 20120423
  Receipt Date: 20120418
  Transmission Date: 20120825
  Serious: Yes (Hospitalization, Other)
  Sender: FDA-Public Use
  Company Number: US-PFIZER INC-2012017195

PATIENT
  Sex: Female
  Weight: 54.422 kg

DRUGS (3)
  1. DILANTIN-125 [Suspect]
     Dosage: UNK
  2. TEGRETOL [Suspect]
     Indication: CONVULSION
     Dosage: 200 MG, 3X/DAY
     Dates: start: 20060101
  3. NEURONTIN [Suspect]
     Indication: CONVULSION
     Dosage: 600 MG, 3X/DAY
     Route: 048
     Dates: start: 20060101

REACTIONS (4)
  - MYOCARDIAL INFARCTION [None]
  - TOOTH DISORDER [None]
  - GENERAL PHYSICAL CONDITION ABNORMAL [None]
  - LIVER DISORDER [None]
